FAERS Safety Report 9822113 (Version 1)
Quarter: 2014Q1

REPORT INFORMATION
  Report Type: Spontaneous
  Country: AU (occurrence: AU)
  Receive Date: 20140116
  Receipt Date: 20140116
  Transmission Date: 20141002
  Serious: Yes (Other)
  Sender: FDA-Public Use
  Company Number: PHHY2014AU003368

PATIENT
  Age: 15 Year
  Sex: Male

DRUGS (3)
  1. PREDNISOLONE [Suspect]
     Indication: BRONCHOPULMONARY ASPERGILLOSIS ALLERGIC
     Dosage: 1.2 MG/KG, PER DAY
  2. PREDNISONE [Suspect]
     Indication: BRONCHOPULMONARY ASPERGILLOSIS ALLERGIC
  3. ITRACONAZOLE [Concomitant]
     Indication: BRONCHOPULMONARY ASPERGILLOSIS ALLERGIC

REACTIONS (3)
  - Forearm fracture [Unknown]
  - Pancreatitis acute [Unknown]
  - Drug dependence [Unknown]
